FAERS Safety Report 5059839-4 (Version None)
Quarter: 2006Q3

REPORT INFORMATION
  Report Type: 
  Country: None (occurrence: None)
  Receive Date: 20060724
  Receipt Date: 20060719
  Transmission Date: 20061208
  Serious: Yes (Death)
  Sender: FDA-Public Use
  Company Number: 2006UW14807

PATIENT
  Age: 80 Year
  Sex: Male

DRUGS (2)
  1. DIPRIVAN [Suspect]
     Route: 042
  2. PROTONIX [Suspect]
     Indication: GASTRIC DISORDER

REACTIONS (2)
  - DRUG DISPENSING ERROR [None]
  - WRONG DRUG ADMINISTERED [None]
